FAERS Safety Report 19588525 (Version 1)
Quarter: 2021Q3

REPORT INFORMATION
  Report Type: Spontaneous
  Country: CA (occurrence: CA)
  Receive Date: 20210721
  Receipt Date: 20210721
  Transmission Date: 20211014
  Serious: Yes (Death, Hospitalization)
  Sender: FDA-Public Use
  Company Number: CA-TEVA-2021-CA-1932832

PATIENT
  Age: 62 Year
  Sex: Male
  Weight: 110 kg

DRUGS (32)
  1. ACETAMINOPHEN. [Concomitant]
     Active Substance: ACETAMINOPHEN
  2. LORAZEPAM. [Concomitant]
     Active Substance: LORAZEPAM
  3. MAGNESIUM [Concomitant]
     Active Substance: MAGNESIUM
  4. MEROPENEM. [Concomitant]
     Active Substance: MEROPENEM
  5. POSANOL [Concomitant]
     Active Substance: POSACONAZOLE
  6. ROSUVASTATIN. [Concomitant]
     Active Substance: ROSUVASTATIN
  7. THIAMINE. [Concomitant]
     Active Substance: THIAMINE
  8. METHOTREXATE. [Suspect]
     Active Substance: METHOTREXATE
     Indication: NON-HODGKIN^S LYMPHOMA
     Route: 065
  9. CODEINE [Concomitant]
     Active Substance: CODEINE
  10. ONDANSETRON [Concomitant]
     Active Substance: ONDANSETRON
  11. PHOSPHATE [Concomitant]
     Active Substance: UNSPECIFIED INGREDIENT
  12. QUETIAPINE. [Concomitant]
     Active Substance: QUETIAPINE
  13. VORAXAZE [Concomitant]
     Active Substance: GLUCARPIDASE
  14. AMLODIPINE [Concomitant]
     Active Substance: AMLODIPINE BESYLATE
  15. INSULIN [Concomitant]
     Active Substance: INSULIN NOS
  16. DEXAMETHASONE. [Concomitant]
     Active Substance: DEXAMETHASONE
     Route: 065
  17. METOCLOPRAMIDE. [Concomitant]
     Active Substance: METOCLOPRAMIDE
  18. METHOTREXATE. [Suspect]
     Active Substance: METHOTREXATE
     Indication: CENTRAL NERVOUS SYSTEM INJURY
  19. ACETYLSALICYLIC ACID [Concomitant]
     Active Substance: ASPIRIN
  20. CELECOXIB. [Concomitant]
     Active Substance: CELECOXIB
  21. FUROSEMIDE. [Concomitant]
     Active Substance: FUROSEMIDE
  22. HALOPERIDOL. [Concomitant]
     Active Substance: HALOPERIDOL
  23. PHOSPHATES SOLUTION [Concomitant]
  24. POLYETHYLENE GLYCOL [Concomitant]
     Active Substance: POLYETHYLENE GLYCOLS
  25. TRIMETHOPRIM?SULFAMETHOXAZOLE [Concomitant]
     Active Substance: SULFAMETHOXAZOLE\TRIMETHOPRIM
  26. ENOXAPARIN [Concomitant]
     Active Substance: ENOXAPARIN
  27. JANUMET [Concomitant]
     Active Substance: METFORMIN HYDROCHLORIDE\SITAGLIPTIN PHOSPHATE
  28. LEUCOVORIN. [Concomitant]
     Active Substance: LEUCOVORIN
  29. METOPROLOL. [Concomitant]
     Active Substance: METOPROLOL
     Route: 065
  30. PIOGLITAZONE. [Concomitant]
     Active Substance: PIOGLITAZONE
  31. POTASSIUM [Concomitant]
     Active Substance: POTASSIUM
  32. SODIUM BICARBONATE. [Concomitant]
     Active Substance: SODIUM BICARBONATE

REACTIONS (7)
  - Non-Hodgkin^s lymphoma [Fatal]
  - Toxicity to various agents [Fatal]
  - Disease progression [Fatal]
  - Encephalopathy [Fatal]
  - Renal failure [Fatal]
  - Staphylococcal bacteraemia [Fatal]
  - Staphylococcal infection [Fatal]
